FAERS Safety Report 6899729-5 (Version None)
Quarter: 2010Q3

REPORT INFORMATION
  Report Type: 
  Country: None (occurrence: None)
  Receive Date: 20100708
  Receipt Date: 20090707
  Transmission Date: 20110219
  Serious: Yes (Other)
  Sender: FDA-Public Use
  Company Number: 2009240003

PATIENT
  Age: 39 Year
  Sex: Female
  Weight: 63.5 kg

DRUGS (2)
  1. CHANTIX [Suspect]
     Indication: SMOKING CESSATION THERAPY
     Dates: start: 20090101, end: 20090601
  2. MONTELUKAST SODIUM [Concomitant]

REACTIONS (3)
  - AGGRESSION [None]
  - MOOD ALTERED [None]
  - SUICIDAL IDEATION [None]
